FAERS Safety Report 7238735-8 (Version None)
Quarter: 2011Q1

REPORT INFORMATION
  Report Type: 
  Country: None (occurrence: None)
  Receive Date: 20110121
  Receipt Date: 20110106
  Transmission Date: 20110831
  Serious: Yes (Other)
  Sender: FDA-Public Use
  Company Number: FR-PURDUE-GBR-2011-0007575

PATIENT
  Age: 32 Year
  Sex: Female

DRUGS (2)
  1. BUPIVACAINE HCL [Suspect]
     Dosage: 10 MG, UNK
  2. MORPHINE SULFATE [Suspect]

REACTIONS (3)
  - SPASTIC PARAPLEGIA [None]
  - SPINAL COLUMN INJURY [None]
  - HYPERSENSITIVITY [None]
